FAERS Safety Report 8941588 (Version 1)
Quarter: 2012Q4

REPORT INFORMATION
  Report Type: 
  Country: US (occurrence: US)
  Receive Date: 20121203
  Receipt Date: 20121203
  Transmission Date: 20130627
  Serious: Yes (Congenital Anomaly, Other)
  Sender: FDA-Public Use
  Company Number: US-PFIZER INC-2012299278

PATIENT
  Age: 1 Day
  Sex: Female

DRUGS (7)
  1. ZOLOFT [Suspect]
     Dosage: 100 mg
     Route: 064
     Dates: start: 20041108
  2. PROTONIX [Concomitant]
     Indication: GERD
     Dosage: 40 mg UNK
     Route: 064
  3. LORATADINE [Concomitant]
     Indication: ALLERGY
     Dosage: 10mg UNK
     Route: 064
  4. INDOCIN [Concomitant]
     Indication: PAIN
     Dosage: 25 mg UNK
     Route: 064
  5. DEPAKOTE [Concomitant]
     Dosage: UNK
     Route: 064
  6. TOPAMAX [Concomitant]
     Dosage: UNK
     Route: 064
  7. PRENATAL VITAMINS [Concomitant]
     Dosage: UNK
     Route: 064

REACTIONS (9)
  - Maternal exposure timing unspecified [Unknown]
  - Turner^s syndrome [Unknown]
  - Renal aplasia [Unknown]
  - Patent ductus arteriosus [Unknown]
  - Right atrial dilatation [Unknown]
  - Pulmonary hypertension [Unknown]
  - Dilatation ventricular [Unknown]
  - Atrial septal defect [Unknown]
  - Hypertelorism of orbit [Unknown]
